FAERS Safety Report 19544000 (Version 1)
Quarter: 2021Q3

REPORT INFORMATION
  Report Type: Spontaneous
  Country: US (occurrence: US)
  Receive Date: 20210713
  Receipt Date: 20210713
  Transmission Date: 20211014
  Serious: No
  Sender: FDA-Public Use
  Company Number: US-FERRINGPH-2020FE08742

PATIENT
  Sex: Male

DRUGS (1)
  1. ZOMACTON [Suspect]
     Active Substance: SOMATROPIN
     Indication: PRODUCT USED FOR UNKNOWN INDICATION
     Dosage: UNK
     Route: 065
     Dates: start: 2012

REACTIONS (4)
  - Device breakage [Unknown]
  - Injection site haemorrhage [Unknown]
  - Device use issue [Unknown]
  - Injection site bruising [Unknown]

NARRATIVE: CASE EVENT DATE: 2017
